FAERS Safety Report 6074359-6 (Version None)
Quarter: 2009Q1

REPORT INFORMATION
  Report Type: 
  Country: None (occurrence: None)
  Receive Date: 20090211
  Receipt Date: 20090130
  Transmission Date: 20090719
  Serious: Yes (Other)
  Sender: FDA-Public Use
  Company Number: US-PFIZER INC-2009167577

PATIENT
  Sex: Female
  Weight: 58.05 kg

DRUGS (6)
  1. GEODON [Suspect]
     Dosage: 40 MG, 1X/DAY
     Dates: start: 20080801
  2. ABILIFY [Suspect]
     Dates: start: 20081101, end: 20080101
  3. DEPAKOTE [Concomitant]
     Route: 048
  4. ARICEPT [Concomitant]
  5. NAMENDA [Concomitant]
  6. KLONOPIN [Concomitant]

REACTIONS (9)
  - ACTIVITIES OF DAILY LIVING IMPAIRED [None]
  - AGGRESSION [None]
  - AGITATION [None]
  - ASTHENIA [None]
  - DECREASED APPETITE [None]
  - GAIT DISTURBANCE [None]
  - SOMNOLENCE [None]
  - TREMOR [None]
  - WEIGHT DECREASED [None]
